FAERS Safety Report 22376369 (Version 2)
Quarter: 2023Q2

REPORT INFORMATION
  Report Type: Spontaneous
  Country: US (occurrence: US)
  Receive Date: 20230527
  Receipt Date: 20230527
  Transmission Date: 20230721
  Serious: No
  Sender: FDA-Public Use
  Company Number: US-Dermavant-000542

PATIENT
  Age: 65 Year
  Sex: Female

DRUGS (1)
  1. TAPINAROF [Suspect]
     Active Substance: TAPINAROF

REACTIONS (4)
  - Hypersensitivity [Unknown]
  - Swelling [Unknown]
  - Erythema [Unknown]
  - Skin burning sensation [Unknown]
